FAERS Safety Report 7449817-X (Version None)
Quarter: 2011Q2

REPORT INFORMATION
  Report Type: 
  Country: None (occurrence: None)
  Receive Date: 20110502
  Receipt Date: 20110420
  Transmission Date: 20111010
  Serious: Yes (Other)
  Sender: FDA-Public Use
  Company Number: BR-JNJFOC-20110410029

PATIENT
  Sex: Female

DRUGS (3)
  1. REMINYL ER [Suspect]
     Indication: DEMENTIA ALZHEIMER'S TYPE
     Route: 065
  2. REMINYL ER [Suspect]
     Route: 065
  3. REMINYL ER [Suspect]
     Route: 065

REACTIONS (3)
  - ABNORMAL BEHAVIOUR [None]
  - HALLUCINATION [None]
  - DELUSION [None]
